FAERS Safety Report 9870719 (Version 2)
Quarter: 2014Q1

REPORT INFORMATION
  Report Type: Spontaneous
  Country: GB (occurrence: GB)
  Receive Date: 20140205
  Receipt Date: 20140205
  Transmission Date: 20141002
  Serious: Yes (Hospitalization)
  Sender: FDA-Public Use
  Company Number: GB-UCBSA-108280

PATIENT
  Age: 80 Year
  Sex: Male

DRUGS (3)
  1. NEUPRO [Suspect]
     Indication: PARKINSON^S DISEASE
     Dates: start: 20131224
  2. NEUPRO [Suspect]
     Indication: PARKINSON^S DISEASE
  3. MADOPAR [Concomitant]
     Indication: PARKINSON^S DISEASE
     Dosage: UNKNOWN DOSE
     Route: 048

REACTIONS (3)
  - Small intestinal obstruction [Recovered/Resolved]
  - Mobility decreased [Unknown]
  - Overdose [Recovered/Resolved]
